FAERS Safety Report 8239588-1 (Version None)
Quarter: 2012Q1

REPORT INFORMATION
  Report Type: 
  Country: None (occurrence: None)
  Receive Date: 20120328
  Receipt Date: 20120315
  Transmission Date: 20120608
  Serious: Yes (Hospitalization)
  Sender: FDA-Public Use
  Company Number: BR-JNJFOC-20120312016

PATIENT
  Sex: Male
  Weight: 102 kg

DRUGS (3)
  1. LYRICA [Suspect]
     Indication: BONE PAIN
     Route: 048
  2. GABAPENTIN [Concomitant]
     Indication: PRODUCT USED FOR UNKNOWN INDICATION
     Route: 065
  3. TRAMADOL HYDROCHLORIDE [Suspect]
     Indication: PRODUCT USED FOR UNKNOWN INDICATION
     Route: 065

REACTIONS (9)
  - FALL [None]
  - SENSORY LOSS [None]
  - HEAD INJURY [None]
  - ACCIDENT AT WORK [None]
  - MENTAL DISORDER [None]
  - SPONDYLOLISTHESIS [None]
  - BACK PAIN [None]
  - PAIN [None]
  - NERVE INJURY [None]
